FAERS Safety Report 6995201-2 (Version None)
Quarter: 2010Q3

REPORT INFORMATION
  Report Type: 
  Country: None (occurrence: None)
  Receive Date: 20100917
  Receipt Date: 20090702
  Transmission Date: 20110219
  Serious: Yes (Other)
  Sender: FDA-Public Use
  Company Number: US-WYE-H03877408

PATIENT
  Sex: Female

DRUGS (5)
  1. PREMPRO [Suspect]
     Indication: HOT FLUSH
  2. PREMPRO [Suspect]
     Indication: MOOD SWINGS
  3. ACTIVELLA [Suspect]
  4. PREMPHASE 14/14 [Suspect]
     Indication: HOT FLUSH
  5. PREMPHASE 14/14 [Suspect]
     Indication: MOOD SWINGS

REACTIONS (1)
  - BREAST CANCER [None]
